FAERS Safety Report 11366059 (Version 4)
Quarter: 2017Q4

REPORT INFORMATION
  Report Type: Report from Study
  Country: JP (occurrence: JP)
  Receive Date: 20150811
  Receipt Date: 20171228
  Transmission Date: 20180320
  Serious: Yes (Other)
  Sender: FDA-Public Use
  Company Number: JP-DSJP-DSJ-2015-124636AA

PATIENT

DRUGS (14)
  1. CEFAZOLIN [Concomitant]
     Active Substance: CEFAZOLIN
     Dosage: 2G/DAY
     Route: 042
     Dates: start: 20150302, end: 20150304
  2. MEVALOTIN TABLET 5MG [Concomitant]
     Dosage: 5MG/DAY
     Route: 048
  3. SENNOSIDE                          /00571901/ [Concomitant]
     Active Substance: SENNOSIDES A AND B
     Dosage: 24MG/DAY
     Route: 048
     Dates: start: 20150301, end: 20150301
  4. FLAGYL [Concomitant]
     Active Substance: METRONIDAZOLE\METRONIDAZOLE HYDROCHLORIDE
     Dosage: 250MG/DAY
     Route: 067
     Dates: start: 20150307, end: 20150307
  5. MEROPEN                            /01250501/ [Concomitant]
     Active Substance: MEROPENEM
     Dosage: 1.5G/DAY
     Route: 042
     Dates: start: 20150313, end: 20150316
  6. AZUCURENIN S [Concomitant]
     Active Substance: GLUTAMINE
     Dosage: 0.67G/DAY
     Route: 048
     Dates: start: 20150303
  7. DAIKENCHUTO [Concomitant]
     Active Substance: HERBALS
     Dosage: 7.5G/DAY
     Route: 048
     Dates: start: 20150305
  8. ROPION [Concomitant]
     Active Substance: FLURBIPROFEN AXETIL
     Dosage: 25 MG, AS NEEDED
     Route: 042
     Dates: start: 20150304, end: 20150322
  9. REZALTAS COMBINATION TABLETS LD [Concomitant]
     Active Substance: AZELNIDIPINE\OLMESARTAN MEDOXOMIL
     Dosage: 10MG/8MG/DAY
     Route: 048
  10. GLYCERIN                           /00200601/ [Concomitant]
     Active Substance: GLYCERIN
     Dosage: 120ML/DAY
     Route: 050
     Dates: start: 20150301, end: 20150302
  11. RHYTHMY [Concomitant]
     Active Substance: RILMAZAFONE HYDROCHLORIDE
     Dosage: 1MG/DAY
     Route: 048
  12. MEILAX [Concomitant]
     Active Substance: ETHYL LOFLAZEPATE
     Dosage: 1MG/DAY
     Route: 048
  13. LOXOPROFEN SODIUM [Concomitant]
     Active Substance: LOXOPROFEN SODIUM
     Dosage: 60 MG, AS NEEDED
     Route: 048
     Dates: start: 20150303
  14. EDOXABAN [Suspect]
     Active Substance: EDOXABAN TOSYLATE
     Indication: DEEP VEIN THROMBOSIS
     Dosage: 30 MG, QD
     Route: 048
     Dates: start: 20150306, end: 20150319

REACTIONS (2)
  - Drug-induced liver injury [Recovered/Resolved]
  - Pelvic haematoma obstetric [Recovered/Resolved]

NARRATIVE: CASE EVENT DATE: 20150316
